FAERS Safety Report 9125277 (Version 1)
Quarter: 2013Q1

REPORT INFORMATION
  Report Type: Spontaneous
  Country: DK (occurrence: DK)
  Receive Date: 20130227
  Receipt Date: 20130227
  Transmission Date: 20140127
  Serious: Yes (Other)
  Sender: FDA-Public Use
  Company Number: PHHY2013DK016596

PATIENT
  Sex: Female

DRUGS (9)
  1. VINORELBINE [Suspect]
     Dates: end: 201002
  2. PACLITAXEL [Suspect]
     Dates: start: 201206
  3. GEMCITABINE [Suspect]
     Dosage: UNK
     Dates: start: 201201
  4. HERCEPTIN [Suspect]
     Dates: end: 201002
  5. HERCEPTIN [Suspect]
     Dosage: UNK
     Route: 065
     Dates: start: 201201
  6. XELODA [Suspect]
     Dosage: UNK
     Route: 048
     Dates: start: 201105, end: 201201
  7. TAXOTERE [Suspect]
     Dates: start: 201206
  8. ERIBULIN [Suspect]
     Indication: BREAST CANCER
     Dosage: UNK
     Dates: start: 2006
  9. LAPATINIB [Suspect]
     Dates: start: 201105, end: 201201

REACTIONS (3)
  - Ejection fraction abnormal [Unknown]
  - Haematotoxicity [Unknown]
  - Disease progression [Not Recovered/Not Resolved]
